FAERS Safety Report 14068752 (Version 2)
Quarter: 2017Q4

REPORT INFORMATION
  Report Type: Report from Study
  Country: AT (occurrence: AT)
  Receive Date: 20171010
  Receipt Date: 20171027
  Transmission Date: 20180321
  Serious: Yes (Hospitalization)
  Sender: FDA-Public Use
  Company Number: AT-INCYTE CORPORATION-2017IN008545

PATIENT

DRUGS (4)
  1. PANTOLOC [Concomitant]
     Active Substance: PANTOPRAZOLE SODIUM
     Indication: PRODUCT USED FOR UNKNOWN INDICATION
     Dosage: 40 MG, QD
     Route: 065
     Dates: start: 2011
  2. DILATREND [Concomitant]
     Active Substance: CARVEDILOL
     Indication: HYPERTONIA
     Dosage: 6.25 MG, QD
     Route: 065
     Dates: start: 2011
  3. JAKAVI [Suspect]
     Active Substance: RUXOLITINIB
     Indication: PRIMARY MYELOFIBROSIS
     Dosage: 15 MG, BID (1-0-1)
     Route: 048
     Dates: start: 20120606
  4. XARELTO [Concomitant]
     Active Substance: RIVAROXABAN
     Indication: THROMBOSIS
     Dosage: 20 MG, QD
     Route: 065
     Dates: start: 201407, end: 20150511

REACTIONS (1)
  - Dental cyst [Recovered/Resolved]

NARRATIVE: CASE EVENT DATE: 20150509
